FAERS Safety Report 10974720 (Version 1)
Quarter: 2015Q2

REPORT INFORMATION
  Report Type: Spontaneous
  Country: GB (occurrence: GB)
  Receive Date: 20150401
  Receipt Date: 20150401
  Transmission Date: 20150821
  Serious: Yes (Other)
  Sender: FDA-Public Use
  Company Number: GB-009507513-1503GBR011399

PATIENT
  Age: 27 Year
  Sex: Female
  Weight: 75 kg

DRUGS (15)
  1. DOXYCYCLINE. [Concomitant]
     Active Substance: DOXYCYCLINE
     Dosage: 1 DF, BID
     Dates: start: 20141229, end: 20150105
  2. FLOXACILLIN [Concomitant]
     Active Substance: FLUCLOXACILLIN
     Dosage: 1 DF, QID
     Dates: start: 20150219, end: 20150226
  3. SERTRALINE HYDROCHLORIDE. [Concomitant]
     Active Substance: SERTRALINE HYDROCHLORIDE
     Dosage: 1 DF, QD
     Dates: start: 20141229
  4. VENTOLIN [Concomitant]
     Active Substance: ALBUTEROL SULFATE
     Route: 055
     Dates: start: 20110218
  5. CLENIL MODULITE [Concomitant]
     Active Substance: BECLOMETHASONE DIPROPIONATE
     Dosage: 2 DF, BID
     Route: 055
     Dates: start: 20110218
  6. ETONOGESTREL [Concomitant]
     Active Substance: ETONOGESTREL
     Dosage: USE AS DIRECTED
     Dates: start: 20150129, end: 20150130
  7. PROCHLORPERAZINE. [Concomitant]
     Active Substance: PROCHLORPERAZINE
     Dates: start: 20141222, end: 20150119
  8. NAPROXEN. [Concomitant]
     Active Substance: NAPROXEN
     Dosage: 1 DF, TID
     Dates: start: 20141229, end: 20150126
  9. NEXPLANON [Suspect]
     Active Substance: ETONOGESTREL
     Dosage: UNK
     Dates: start: 20150313
  10. FLOXACILLIN [Concomitant]
     Active Substance: FLUCLOXACILLIN
     Dosage: 1 DF, QID
     Dates: start: 20150116, end: 20150123
  11. LIDOCAINE. [Concomitant]
     Active Substance: LIDOCAINE
     Dosage: USE AS DIRECTED
     Dates: start: 20150113, end: 20150114
  12. LIDOCAINE. [Concomitant]
     Active Substance: LIDOCAINE
     Dosage: USE AS DIRECTED
     Dates: start: 20150217, end: 20150218
  13. MICROGYNON [Concomitant]
     Active Substance: ETHINYL ESTRADIOL\LEVONORGESTREL ACETATE
     Dosage: 1 DF, QD
     Dates: start: 20141222
  14. CERAZETTE [Concomitant]
     Active Substance: DESOGESTREL
     Dosage: 1 DF, QD
     Dates: start: 20150219
  15. NEXPLANON [Suspect]
     Active Substance: ETONOGESTREL
     Dosage: USE AS DIRECTED
     Dates: start: 20150112, end: 20150113

REACTIONS (2)
  - Reaction to drug excipients [Recovered/Resolved]
  - Urticaria [Recovered/Resolved]

NARRATIVE: CASE EVENT DATE: 20150313
